FAERS Safety Report 8103077-5 (Version None)
Quarter: 2012Q1

REPORT INFORMATION
  Report Type: 
  Country: None (occurrence: None)
  Receive Date: 20120201
  Receipt Date: 20120201
  Transmission Date: 20120608
  Serious: Yes (Death)
  Sender: FDA-Public Use
  Company Number: None

PATIENT
  Sex: Female
  Weight: 146.11 kg

DRUGS (23)
  1. PEPCID [Concomitant]
  2. SYNTHROID [Concomitant]
  3. ACETAMINOPHEN [Concomitant]
     Route: 048
  4. CALCIUM GLUCONATE [Concomitant]
  5. DIGOXIN [Concomitant]
  6. DIPHENHYDRAMINE HCL [Concomitant]
  7. HYDROMORPHONE HCL [Concomitant]
  8. LEVAQUIN [Concomitant]
  9. VITAMIN D [Concomitant]
  10. ATIVAN [Concomitant]
  11. POTASSIUM CHLORIDE [Concomitant]
     Route: 048
  12. MAGNESIUM [Concomitant]
  13. METAXOLONE [Concomitant]
  14. MULTIVITAMIN [Concomitant]
  15. PROTONIX [Concomitant]
  16. TIGECYCLINE [Concomitant]
  17. COLACE [Concomitant]
     Route: 048
  18. PROFILNINE SD [Suspect]
     Indication: DEBRIDEMENT
     Dosage: 5000 UNITS
     Route: 040
     Dates: start: 20120130, end: 20120130
  19. DAPTOMYCIN [Concomitant]
  20. ALLEGRA [Concomitant]
  21. NOREPINEPHERINE [Concomitant]
  22. PAXIL [Concomitant]
  23. DOPAMINE/DEXTROSE 250ML [Concomitant]

REACTIONS (14)
  - CELLULITIS [None]
  - VENTRICULAR FIBRILLATION [None]
  - MULTI-ORGAN DISORDER [None]
  - HYPOKALAEMIA [None]
  - INTERNATIONAL NORMALISED RATIO INCREASED [None]
  - CARDIO-RESPIRATORY ARREST [None]
  - SEPSIS [None]
  - ATRIAL FIBRILLATION [None]
  - COR PULMONALE [None]
  - PULMONARY HYPERTENSION [None]
  - RENAL FAILURE [None]
  - HYPONATRAEMIA [None]
  - DEHYDRATION [None]
  - UNEVALUABLE EVENT [None]
